FAERS Safety Report 13404132 (Version 2)
Quarter: 2017Q2

REPORT INFORMATION
  Report Type: Spontaneous
  Country: US (occurrence: US)
  Receive Date: 20170405
  Receipt Date: 20170501
  Transmission Date: 20170830
  Serious: Yes (Hospitalization)
  Sender: FDA-Public Use
  Company Number: US-009507513-1703USA012290

PATIENT
  Sex: Male

DRUGS (9)
  1. METFORMIN [Concomitant]
     Active Substance: METFORMIN HYDROCHLORIDE
     Indication: DIABETES MELLITUS
     Dosage: 1000 MG, TWICE A DAY
     Dates: start: 2007
  2. PRINIVIL [Suspect]
     Active Substance: LISINOPRIL
     Indication: DIABETES MELLITUS
     Dosage: 10 MG (1 TABLET) A DAY
     Route: 048
     Dates: start: 2012
  3. LEVEMIR [Concomitant]
     Active Substance: INSULIN DETEMIR
     Indication: DIABETES MELLITUS
     Dosage: 50 UNITS PER DAY
     Dates: start: 2016
  4. GLIMEPIRIDE. [Concomitant]
     Active Substance: GLIMEPIRIDE
     Indication: DIABETES MELLITUS
     Dosage: 4 MG, 2 TIMES A DAY
     Dates: start: 2012
  5. ATENOLOL. [Concomitant]
     Active Substance: ATENOLOL
     Indication: CARDIAC DISORDER
     Dosage: 25 MG (1 TABLET), A DAY
     Dates: start: 2013
  6. PRINIVIL [Suspect]
     Active Substance: LISINOPRIL
     Indication: BLOOD PRESSURE ABNORMAL
  7. MELOXICAM. [Suspect]
     Active Substance: MELOXICAM
     Dosage: UNK
     Route: 048
     Dates: start: 2015
  8. GABAPENTIN. [Concomitant]
     Active Substance: GABAPENTIN
     Indication: NEUROPATHY PERIPHERAL
     Dosage: 4 TABLETS (600 MG) A DAY
     Route: 048
     Dates: start: 2012
  9. FENOFIBRATE. [Concomitant]
     Active Substance: FENOFIBRATE
     Dosage: UNK
     Dates: start: 2015

REACTIONS (3)
  - Product use in unapproved indication [Unknown]
  - Sleep disorder [Not Recovered/Not Resolved]
  - Pain in extremity [Not Recovered/Not Resolved]

NARRATIVE: CASE EVENT DATE: 2012
